FAERS Safety Report 23672539 (Version 1)
Quarter: 2024Q1

REPORT INFORMATION
  Report Type: Spontaneous
  Country: GB (occurrence: GB)
  Receive Date: 20240326
  Receipt Date: 20240326
  Transmission Date: 20240410
  Serious: Yes (Hospitalization)
  Sender: FDA-Public Use
  Company Number: GB-MYLANLABS-2023M1055808

PATIENT
  Age: 43 Year
  Sex: Male
  Weight: 80 kg

DRUGS (29)
  1. CLOZARIL [Suspect]
     Active Substance: CLOZAPINE
     Indication: Schizophrenia
     Dosage: 37.5 MILLIGRAM, BID
     Route: 048
     Dates: start: 20230524
  2. CLOZARIL [Suspect]
     Active Substance: CLOZAPINE
     Indication: Schizoaffective disorder
  3. CLOZARIL [Suspect]
     Active Substance: CLOZAPINE
     Indication: Autism spectrum disorder
  4. CLOZARIL [Suspect]
     Active Substance: CLOZAPINE
     Indication: Epilepsy
  5. AMISULPRIDE [Suspect]
     Active Substance: AMISULPRIDE
     Indication: Product used for unknown indication
     Dosage: UNK
     Route: 065
  6. RISPERIDONE [Suspect]
     Active Substance: RISPERIDONE
     Indication: Product used for unknown indication
     Dosage: UNK
     Route: 065
  7. OLANZAPINE [Suspect]
     Active Substance: OLANZAPINE
     Indication: Product used for unknown indication
     Dosage: UNK
     Route: 065
  8. ARIPIPRAZOLE [Concomitant]
     Active Substance: ARIPIPRAZOLE
     Indication: Psychotic disorder
     Dosage: 25 MILLIGRAM
     Route: 065
  9. ARIPIPRAZOLE [Concomitant]
     Active Substance: ARIPIPRAZOLE
     Dosage: 20 MILLIGRAM, QD (OD)
     Route: 065
     Dates: start: 20221020
  10. FLUOXETINE [Concomitant]
     Active Substance: FLUOXETINE HYDROCHLORIDE
     Indication: Depression
     Dosage: 60 MILLIGRAM, QD (OD)
     Route: 048
     Dates: start: 20221020
  11. FLUOXETINE [Concomitant]
     Active Substance: FLUOXETINE HYDROCHLORIDE
     Indication: Anxiety
  12. LORAZEPAM [Concomitant]
     Active Substance: LORAZEPAM
     Indication: Agitation
     Dosage: 1 MILLIGRAM, BID (BID)
     Route: 048
     Dates: start: 20221020
  13. LORAZEPAM [Concomitant]
     Active Substance: LORAZEPAM
     Indication: Anxiety
     Dosage: 1-2MG ORAL/ IM, PRN (MAX 6MG IN 24 HRS)
     Route: 065
     Dates: start: 20221020
  14. PROCYCLIDINE [Concomitant]
     Active Substance: PROCYCLIDINE
     Indication: Psychotic symptom
     Dosage: 5 MILLIGRAM, BID (BD)
     Route: 048
     Dates: start: 20221020
  15. ZOPICLONE [Concomitant]
     Active Substance: ZOPICLONE
     Indication: Insomnia
     Dosage: 7.5 MILLIGRAM, QD (NOCTE (PRN)
     Route: 048
     Dates: start: 20221020
  16. CLOBAZAM [Concomitant]
     Active Substance: CLOBAZAM
     Indication: Epilepsy
     Dosage: 30 MILLIGRAM, QD (NOCTE)
     Route: 048
     Dates: start: 20221020
  17. LACOSAMIDE [Concomitant]
     Active Substance: LACOSAMIDE
     Indication: Epilepsy
     Dosage: 300 MILLIGRAM, BID (BD)
     Route: 048
     Dates: start: 20221020
  18. CHLORHEXIDINE [Concomitant]
     Active Substance: CHLORHEXIDINE\CHLORHEXIDINE GLUCONATE
     Indication: Gingival disorder
     Dosage: 10 MILLILITER, BID (BD)
     Route: 048
     Dates: start: 20221020
  19. CARBOHYDRATES\FATTY ACIDS\MINERALS\PROTEIN\VITAMINS [Concomitant]
     Active Substance: CARBOHYDRATES\FATTY ACIDS\MINERALS\PROTEIN\VITAMINS
     Indication: Malnutrition
     Dosage: 125 MILLILITER, BID (BD)
     Route: 048
     Dates: start: 20221020
  20. CHOLECALCIFEROL [Concomitant]
     Active Substance: CHOLECALCIFEROL
     Indication: Vitamin D decreased
     Dosage: 800 INTERNATIONAL UNIT, QD (800 UNITS OD)
     Route: 048
     Dates: start: 20221020
  21. ZONISAMIDE [Concomitant]
     Active Substance: ZONISAMIDE
     Indication: Epilepsy
     Dosage: 500 MILLIGRAM, QD (200MG MANE,  300MG NOCTE)
     Route: 048
     Dates: start: 20221020
  22. CENOBAMATE [Concomitant]
     Active Substance: CENOBAMATE
     Indication: Epilepsy
     Dosage: 50 MILLIGRAM, QD (OD)
     Route: 048
     Dates: start: 20220511
  23. LACTULOSE [Concomitant]
     Active Substance: LACTULOSE
     Indication: Constipation
     Dosage: 15 MILLILITER, QD (NOCTE)
     Route: 048
     Dates: start: 20220511
  24. LACTULOSE [Concomitant]
     Active Substance: LACTULOSE
     Dosage: 15 MILLILITER, QD (PRN (MAX 30MG DAILY)
     Route: 048
     Dates: start: 20221020
  25. MIDAZOLAM [Concomitant]
     Active Substance: MIDAZOLAM
     Indication: Seizure
     Dosage: UNK (10MG/2 ML PRN)
     Route: 048
     Dates: start: 20221020
  26. ACETAMINOPHEN [Concomitant]
     Active Substance: ACETAMINOPHEN
     Indication: Pain
     Dosage: 1 GRAM (PRN (MAX 4G DAILY)
     Route: 048
     Dates: start: 20221020
  27. ACETAMINOPHEN [Concomitant]
     Active Substance: ACETAMINOPHEN
     Indication: Pyrexia
  28. ZEROCREAM [Concomitant]
     Indication: Rash
     Dosage: UNK (APPLY LIBERALLY PRN (MAX TDS)
     Route: 061
     Dates: start: 20221020
  29. ENSURE COMPACT [Concomitant]
     Indication: Malnutrition
     Dosage: 125 MILLILITER (PRN)
     Route: 048
     Dates: start: 20221020

REACTIONS (2)
  - Hospitalisation [Unknown]
  - Off label use [Recovered/Resolved]

NARRATIVE: CASE EVENT DATE: 20230524
